FAERS Safety Report 5113728-5 (Version None)
Quarter: 2006Q3

REPORT INFORMATION
  Report Type: 
  Country: None (occurrence: None)
  Receive Date: 20060921
  Receipt Date: 20060913
  Transmission Date: 20061208
  Serious: Yes (Hospitalization, Other)
  Sender: FDA-Public Use
  Company Number: US-2006-027157

PATIENT
  Age: 19 Year
  Sex: Female
  Weight: 59 kg

DRUGS (3)
  1. YASMIN [Suspect]
     Indication: ORAL CONTRACEPTION
     Dosage: 1 TAB (S), 1X/DAY, ORAL
     Route: 048
     Dates: start: 20040101, end: 20060101
  2. LEXAPRO (ESCITALOPRAM OXALATE) [Concomitant]
  3. LORAZEPAM [Concomitant]

REACTIONS (2)
  - GALLBLADDER NON-FUNCTIONING [None]
  - ILEUS [None]
